FAERS Safety Report 6166560-8 (Version None)
Quarter: 2009Q2

REPORT INFORMATION
  Report Type: 
  Country: None (occurrence: None)
  Receive Date: 20090422
  Receipt Date: 20090422
  Transmission Date: 20091009
  Serious: No
  Sender: FDA-Public Use
  Company Number: None

PATIENT
  Age: 39 Year

DRUGS (1)
  1. ABILIFY [Suspect]
     Indication: PSYCHOTIC DISORDER
     Dosage: 1 10 MG PILL PO DAILY
     Route: 048
     Dates: start: 20011229, end: 20080503

REACTIONS (1)
  - DIARRHOEA [None]
